FAERS Safety Report 21471827 (Version 1)
Quarter: 2022Q4

REPORT INFORMATION
  Report Type: Spontaneous
  Country: US (occurrence: None)
  Receive Date: 20221017
  Receipt Date: 20221017
  Transmission Date: 20230112
  Serious: Yes (Death)
  Sender: FDA-Public Use
  Company Number: None

PATIENT
  Age: 80 Year
  Sex: Female
  Weight: 65.14 kg

DRUGS (20)
  1. LENALIDOMIDE [Suspect]
     Active Substance: LENALIDOMIDE
     Indication: Plasma cell myeloma
     Dosage: OTHER FREQUENCY : 14D Q28 DAYS;?
     Route: 048
     Dates: start: 202207
  2. ACETAMINOPHEN [Concomitant]
     Active Substance: ACETAMINOPHEN
  3. ANASTROZOLE [Concomitant]
     Active Substance: ANASTROZOLE
  4. ASPIRIN [Concomitant]
     Active Substance: ASPIRIN
  5. ATORVASTATIN [Concomitant]
     Active Substance: ATORVASTATIN
  6. B1 [Concomitant]
  7. CALCIUM CARABONATE-VITAMIN D3 [Concomitant]
  8. OMEPRAZOLE [Concomitant]
     Active Substance: OMEPRAZOLE
  9. FELODIPINEEXTENDED-RELEASE TABLETS [Concomitant]
     Active Substance: FELODIPINE
  10. GLIPIZIDE [Concomitant]
     Active Substance: GLIPIZIDE
  11. KEPPRA [Concomitant]
     Active Substance: LEVETIRACETAM
  12. LEVOTHYROXINE [Concomitant]
     Active Substance: LEVOTHYROXINE
  13. LISINOPRIL [Concomitant]
     Active Substance: LISINOPRIL
  14. MIRTAZAPINE [Concomitant]
     Active Substance: MIRTAZAPINE
  15. VITAMINS [Concomitant]
     Active Substance: VITAMINS
  16. PROTONIX [Concomitant]
     Active Substance: PANTOPRAZOLE SODIUM
  17. TULICITY [Concomitant]
  18. TUMS [Concomitant]
     Active Substance: CALCIUM CARBONATE
  19. VITAMIN D [Concomitant]
     Active Substance: VITAMIN D NOS
  20. ZETIA [Concomitant]
     Active Substance: EZETIMIBE

REACTIONS (1)
  - Death [None]
